FAERS Safety Report 9388087 (Version 1)
Quarter: 2013Q3

REPORT INFORMATION
  Report Type: Report from Study
  Country: CA (occurrence: CA)
  Receive Date: 20130708
  Receipt Date: 20130708
  Transmission Date: 20140515
  Serious: Yes (Hospitalization, Other)
  Sender: FDA-Public Use
  Company Number: CA-JNJFOC-20130620826

PATIENT
  Age: 37 Year
  Sex: Male
  Weight: 103 kg

DRUGS (2)
  1. REMICADE [Suspect]
     Indication: CROHN^S DISEASE
     Route: 042
     Dates: start: 20130307
  2. METHOTREXATE [Concomitant]
     Route: 065

REACTIONS (1)
  - Procedural intestinal perforation [Recovered/Resolved]
